FAERS Safety Report 4269852-2 (Version None)
Quarter: 2004Q1

REPORT INFORMATION
  Report Type: 
  Country: None (occurrence: None)
  Receive Date: 20040112
  Receipt Date: 20040112
  Transmission Date: 20041129
  Serious: Yes (Hospitalization)
  Sender: FDA-Public Use
  Company Number: None

PATIENT
  Age: 76 Year
  Sex: Male

DRUGS (4)
  1. ATENOLOL [Suspect]
     Indication: HYPERTENSION
  2. OSCAL [Concomitant]
  3. ALLEGRA [Concomitant]
  4. ACIPHEX [Concomitant]

REACTIONS (1)
  - SINUS BRADYCARDIA [None]
